FAERS Safety Report 21291837 (Version 2)
Quarter: 2022Q3

REPORT INFORMATION
  Report Type: Report from Study
  Country: CA (occurrence: CA)
  Receive Date: 20220903
  Receipt Date: 20220920
  Transmission Date: 20221027
  Serious: Yes (Hospitalization, Other)
  Sender: FDA-Public Use
  Company Number: CA-SA-SAC20220815000409

PATIENT
  Age: 83 Year
  Sex: Male

DRUGS (13)
  1. ISATUXIMAB [Suspect]
     Active Substance: ISATUXIMAB
     Indication: Plasma cell myeloma refractory
     Dosage: 912 MG, QW
     Route: 042
     Dates: start: 202208, end: 20220830
  2. POMALIDOMIDE [Concomitant]
     Active Substance: POMALIDOMIDE
     Dosage: 2 MG
     Dates: end: 20220826
  3. PREDNISONE [Concomitant]
     Active Substance: PREDNISONE
  4. PANTOPRAZOLE [Concomitant]
     Active Substance: PANTOPRAZOLE
  5. FERROUS GLUCONATE [Concomitant]
     Active Substance: FERROUS GLUCONATE
  6. MONTELUKAST [Concomitant]
     Active Substance: MONTELUKAST SODIUM
  7. VALACYCLOVIR [Concomitant]
     Active Substance: VALACYCLOVIR HYDROCHLORIDE
  8. ROSUVASTATIN [Concomitant]
     Active Substance: ROSUVASTATIN
  9. CETIRIZINE [Concomitant]
     Active Substance: CETIRIZINE HYDROCHLORIDE
  10. APIXABAN [Concomitant]
     Active Substance: APIXABAN
  11. DUTASTERIDE [Concomitant]
     Active Substance: DUTASTERIDE
  12. DEXAMETHASONE [Concomitant]
     Active Substance: DEXAMETHASONE
     Dosage: 20 MG
  13. OLANZAPINE [Concomitant]
     Active Substance: OLANZAPINE

REACTIONS (13)
  - Escherichia bacteraemia [Recovered/Resolved]
  - Pyrexia [Unknown]
  - Disorientation [Unknown]
  - Chills [Unknown]
  - Pancytopenia [Unknown]
  - Febrile neutropenia [Unknown]
  - Fatigue [Recovering/Resolving]
  - Discomfort [Recovering/Resolving]
  - Dyspepsia [Recovering/Resolving]
  - Anaemia [Recovering/Resolving]
  - Dyspnoea exertional [Recovering/Resolving]
  - Condition aggravated [Recovering/Resolving]
  - Inappropriate schedule of product administration [Unknown]

NARRATIVE: CASE EVENT DATE: 20220801
